FAERS Safety Report 8758832 (Version 2)
Quarter: 2012Q4

REPORT INFORMATION
  Report Type: 
  Country: US (occurrence: US)
  Receive Date: 20120911
  Receipt Date: 20120912
  Transmission Date: 20130627
  Serious: Yes (Life-Threatening, Hospitalization)
  Sender: FDA-Public Use
  Company Number: PHEH2012US013307

PATIENT
  Age: 87 Year
  Sex: Female
  Weight: 83 kg

DRUGS (11)
  1. LAMISIL [Suspect]
     Indication: TINEA PEDIS
     Dosage: 250 mg, QD
     Route: 048
     Dates: start: 20120626, end: 20120703
  2. LAMISIL [Suspect]
     Indication: TINEA PEDIS
     Route: 048
  3. PLAQUENIL [Concomitant]
  4. LEFLUNOMIDE [Concomitant]
     Dosage: 20 UKN, QD
     Route: 048
  5. HYDROXYCHLOROQUINE [Concomitant]
     Dosage: 200 UKN, QD
     Route: 048
  6. PRILOSEC [Concomitant]
     Dosage: 20 UKN, QD
     Route: 048
  7. LEVOTHYROXINE [Concomitant]
     Dosage: 75 UKN, QD
     Route: 048
  8. METOPROLOL TARTRATE [Concomitant]
     Dosage: Half AM/ 1 PM
     Route: 048
  9. LYRICA [Concomitant]
     Dosage: 150 UKN, BID
     Route: 048
  10. TRAZODONE [Concomitant]
     Dosage: 50 UKN, PRN
     Route: 048
  11. MORFINE [Concomitant]
     Dosage: UNK UKN, PRN
     Route: 048

REACTIONS (9)
  - Anaphylactic shock [Recovering/Resolving]
  - Hypersensitivity [Recovering/Resolving]
  - Rash maculo-papular [Recovering/Resolving]
  - Petechiae [Unknown]
  - Hypotension [Unknown]
  - Renal failure acute [Recovering/Resolving]
  - Asthenia [Unknown]
  - Gait disturbance [Unknown]
  - Diarrhoea [Unknown]
